FAERS Safety Report 6347280-3 (Version None)
Quarter: 2009Q3

REPORT INFORMATION
  Report Type: 
  Country: None (occurrence: None)
  Receive Date: 20090908
  Receipt Date: 20090908
  Transmission Date: 20100115
  Serious: Yes (Other)
  Sender: FDA-Public Use
  Company Number: None

PATIENT
  Age: 77 Year
  Sex: Female
  Weight: 68.0396 kg

DRUGS (2)
  1. REMICADE [Suspect]
     Indication: PSORIATIC ARTHROPATHY
     Dosage: 600 MG EVERY SIX WEEKS IV
     Route: 042
     Dates: start: 20020615, end: 20090612
  2. REMICADE [Suspect]
     Indication: RHEUMATOID ARTHRITIS
     Dosage: 600 MG EVERY SIX WEEKS IV
     Route: 042
     Dates: start: 20020615, end: 20090612

REACTIONS (1)
  - ENDOMETRIAL CANCER [None]
